FAERS Safety Report 14755683 (Version 1)
Quarter: 2018Q2

REPORT INFORMATION
  Report Type: Spontaneous
  Country: US (occurrence: US)
  Receive Date: 20180413
  Receipt Date: 20180413
  Transmission Date: 20180711
  Serious: No
  Sender: FDA-Public Use
  Company Number: US-009507513-1804USA002245

PATIENT
  Sex: Female

DRUGS (1)
  1. ZEPATIER [Suspect]
     Active Substance: ELBASVIR\GRAZOPREVIR
     Indication: HEPATITIS C
     Dosage: ORAL PILL, 12 WEEK TREATMENT
     Route: 048
     Dates: start: 20180209

REACTIONS (5)
  - Skin discolouration [Unknown]
  - Malaise [Unknown]
  - Myalgia [Unknown]
  - Influenza like illness [Unknown]
  - Dizziness [Unknown]

NARRATIVE: CASE EVENT DATE: 2018
